FAERS Safety Report 26192956 (Version 2)
Quarter: 2025Q4

REPORT INFORMATION
  Report Type: Report from Study
  Country: US (occurrence: US)
  Receive Date: 20251223
  Receipt Date: 20251225
  Transmission Date: 20260118
  Serious: Yes (Other)
  Sender: ALEXION PHARMACEUTICALS
  Company Number: US-AstraZeneca-CH-01019183A

PATIENT
  Age: 61 Year
  Sex: Male
  Weight: 76.203 kg

DRUGS (2)
  1. TEZEPELUMAB [Suspect]
     Active Substance: TEZEPELUMAB
     Dosage: 210 MILLIGRAM
     Route: 065
  2. TEZEPELUMAB [Suspect]
     Active Substance: TEZEPELUMAB

REACTIONS (13)
  - Barrett^s oesophagus [Unknown]
  - Hypersensitivity [Unknown]
  - Sneezing [Unknown]
  - Migraine [Unknown]
  - Bronchitis chronic [Unknown]
  - Cough [Unknown]
  - Dyspnoea [Unknown]
  - Lymphadenopathy [Unknown]
  - Upper-airway cough syndrome [Unknown]
  - Headache [Unknown]
  - Gingival pain [Unknown]
  - Wheezing [Unknown]
  - Chest discomfort [Unknown]
